FAERS Safety Report 4719528-X (Version None)
Quarter: 2005Q3

REPORT INFORMATION
  Report Type: 
  Country: None (occurrence: None)
  Receive Date: 20050719
  Receipt Date: 20050706
  Transmission Date: 20060218
  Serious: Yes (Other)
  Sender: FDA-Public Use
  Company Number: 2005098207

PATIENT
  Age: 60 Year
  Sex: Male
  Weight: 88.4514 kg

DRUGS (3)
  1. LIPITOR [Suspect]
     Indication: BLOOD CHOLESTEROL INCREASED
     Dosage: 10 MG (10 MG, 1 IN 1 D) ORAL
     Route: 048
  2. BUFFERIN [Suspect]
     Indication: MYALGIA
     Dosage: 2 TABLETS (BID TO TID)
  3. XANAX [Concomitant]

REACTIONS (13)
  - ANTIBODY TEST POSITIVE [None]
  - CRUSH INJURY [None]
  - DYSPEPSIA [None]
  - ERYTHEMA INFECTIOSUM [None]
  - FATIGUE [None]
  - INFLUENZA [None]
  - MICTURITION URGENCY [None]
  - MYALGIA [None]
  - NERVE INJURY [None]
  - OSTEOARTHRITIS [None]
  - PAIN IN EXTREMITY [None]
  - PARVOVIRUS B19 SEROLOGY POSITIVE [None]
  - TENDON DISORDER [None]
